FAERS Safety Report 9166731 (Version 1)
Quarter: 2013Q1

REPORT INFORMATION
  Report Type: Report from Study
  Country: US (occurrence: US)
  Receive Date: 20130315
  Receipt Date: 20130315
  Transmission Date: 20140127
  Serious: Yes (Hospitalization, Other)
  Sender: FDA-Public Use
  Company Number: US-ABBOTT-13P-163-1060200-00

PATIENT
  Age: 52 Year
  Sex: Female

DRUGS (6)
  1. HUMIRA [Suspect]
     Indication: CROHN^S DISEASE
     Dosage: LOADING DOSE
     Dates: start: 20130109, end: 20130109
  2. HUMIRA [Suspect]
     Dates: start: 20130304
  3. ASA [Concomitant]
     Indication: THROMBOSIS PROPHYLAXIS
  4. LANSOPRAZOLE [Concomitant]
     Indication: CROHN^S DISEASE
  5. PREDNISONE [Concomitant]
     Indication: CROHN^S DISEASE
  6. VITAMIN D3 [Concomitant]
     Indication: PRODUCT USED FOR UNKNOWN INDICATION

REACTIONS (8)
  - Ulcer haemorrhage [Recovering/Resolving]
  - Wound [Recovering/Resolving]
  - Peripheral embolism [Recovering/Resolving]
  - Blood cholesterol increased [Unknown]
  - Nausea [Unknown]
  - Vomiting [Unknown]
  - Pain [Unknown]
  - Hypertension [Unknown]
